FAERS Safety Report 8748122 (Version 2)
Quarter: 2012Q4

REPORT INFORMATION
  Report Type: 
  Country: US (occurrence: US)
  Receive Date: 20120827
  Receipt Date: 20121004
  Transmission Date: 20130627
  Serious: Yes (Other)
  Sender: FDA-Public Use
  Company Number: US-BAYER-2012-086087

PATIENT
  Age: 34 Year
  Sex: Female
  Weight: 87.98 kg

DRUGS (4)
  1. MIRENA [Suspect]
     Indication: CONTRACEPTION
     Dosage: 20 mcg/24hr, CONT
     Route: 015
     Dates: end: 2012
  2. MIRENA [Suspect]
     Indication: CONTRACEPTION
     Dosage: 20 mcg/24hr, CONT
     Route: 015
     Dates: start: 20120628, end: 20120801
  3. LORTAB [Concomitant]
     Indication: ANALGESIC THERAPY
     Dosage: 5 mg, UNK
  4. IBUPROFEN [Concomitant]
     Indication: ANALGESIC THERAPY
     Dosage: 800 mg, UNK

REACTIONS (1)
  - Device dislocation [Recovered/Resolved]
